FAERS Safety Report 13065808 (Version 1)
Quarter: 2016Q4

REPORT INFORMATION
  Report Type: Report from Study
  Country: BR (occurrence: BR)
  Receive Date: 20161227
  Receipt Date: 20161227
  Transmission Date: 20170207
  Serious: Yes (Other)
  Sender: FDA-Public Use
  Company Number: PHHY2016BR178220

PATIENT
  Age: 48 Year
  Sex: Female
  Weight: 85 kg

DRUGS (2)
  1. DIOVAN [Suspect]
     Active Substance: VALSARTAN
     Indication: HYPERTENSION
     Dosage: 320 MG, QD (IN THE MORNING) (7/8 YEARS AGO)
     Route: 048
  2. DIOVAN HCT [Suspect]
     Active Substance: HYDROCHLOROTHIAZIDE\VALSARTAN
     Indication: HYPERTENSION
     Dosage: 1 DF (HYDROCHLOROTHIAZIDE 12.5 MG, VALSARTAN 160 MG), QD (MORE THAN 10 YEARS AGO)
     Route: 048

REACTIONS (8)
  - Confusional state [Unknown]
  - Hypertension [Unknown]
  - Memory impairment [Unknown]
  - Myocardial infarction [Recovered/Resolved]
  - Cardiac disorder [Unknown]
  - Blood pressure fluctuation [Unknown]
  - Cardiac valve disease [Unknown]
  - Myocardial infarction [Recovered/Resolved]

NARRATIVE: CASE EVENT DATE: 201003
